FAERS Safety Report 6181235-7 (Version None)
Quarter: 2009Q2

REPORT INFORMATION
  Report Type: 
  Country: None (occurrence: None)
  Receive Date: 20090506
  Receipt Date: 20090505
  Transmission Date: 20091009
  Serious: No
  Sender: FDA-Public Use
  Company Number: US-B.I. PHARMACEUTICALS,INC./RIDGEFIELD-2009-BP-04717BP

PATIENT
  Age: 48 Year
  Sex: Female
  Weight: 89.8 kg

DRUGS (4)
  1. MIRAPEX [Suspect]
     Dosage: .5MG
     Dates: end: 20090210
  2. EFFEXOR [Concomitant]
  3. LISINOPRIL [Concomitant]
  4. SINEMET [Concomitant]

REACTIONS (2)
  - COMPULSIVE SHOPPING [None]
  - IMPULSIVE BEHAVIOUR [None]
